FAERS Safety Report 17895356 (Version 5)
Quarter: 2022Q2

REPORT INFORMATION
  Report Type: Spontaneous
  Country: US (occurrence: US)
  Receive Date: 20200615
  Receipt Date: 20220614
  Transmission Date: 20220721
  Serious: Yes (Other)
  Sender: FDA-Public Use
  Company Number: US-BAUSCH-BL-2020-016950

PATIENT
  Age: 64 Year
  Sex: Male
  Weight: 81.720 kg

DRUGS (3)
  1. MESTINON [Suspect]
     Active Substance: PYRIDOSTIGMINE BROMIDE
     Indication: Myasthenic syndrome
     Route: 065
     Dates: start: 2018
  2. MESTINON [Suspect]
     Active Substance: PYRIDOSTIGMINE BROMIDE
     Indication: Product use in unapproved indication
  3. FIRDAPSE [Suspect]
     Active Substance: AMIFAMPRIDINE PHOSPHATE
     Indication: Myasthenic syndrome
     Dosage: 10 MG FOUR TO FIVE DOSES PER ONGOING DAY (40-50 MG DAILY)
     Route: 048
     Dates: start: 2018

REACTIONS (17)
  - Ankylosing spondylitis [Unknown]
  - Myasthenic syndrome [Unknown]
  - Disease progression [Unknown]
  - Neuropathy peripheral [Unknown]
  - Gastric disorder [Unknown]
  - Ill-defined disorder [Unknown]
  - Muscle fatigue [Unknown]
  - Balance disorder [Unknown]
  - Malaise [Not Recovered/Not Resolved]
  - Muscle rupture [Not Recovered/Not Resolved]
  - Venous thrombosis limb [Not Recovered/Not Resolved]
  - Peripheral swelling [Recovering/Resolving]
  - Feeling abnormal [Unknown]
  - Dyspnoea [Unknown]
  - Musculoskeletal stiffness [Not Recovered/Not Resolved]
  - Mental fatigue [Unknown]
  - Product use in unapproved indication [Unknown]

NARRATIVE: CASE EVENT DATE: 20180101
